FAERS Safety Report 15838121 (Version 1)
Quarter: 2018Q4

REPORT INFORMATION
  Report Type: Spontaneous
  Country: US (occurrence: US)
  Receive Date: 20181224
  Receipt Date: 20181224
  Transmission Date: 20190205
  Serious: Yes (Hospitalization)
  Sender: FDA-Public Use
  Company Number: None

PATIENT
  Age: 20 Year
  Sex: Male
  Weight: 101 kg

DRUGS (5)
  1. VINCRISTINE SULFATE. [Concomitant]
     Active Substance: VINCRISTINE SULFATE
     Dates: end: 20181212
  2. CYTARABINE. [Suspect]
     Active Substance: CYTARABINE
     Dates: end: 20181205
  3. DAUNORUBICIN [Suspect]
     Active Substance: DAUNORUBICIN
     Dates: end: 20181212
  4. METHOTREXATE. [Suspect]
     Active Substance: METHOTREXATE
     Dates: end: 20181213
  5. ONCASPAR [Suspect]
     Active Substance: PEGASPARGASE
     Dates: end: 20181210

REACTIONS (13)
  - Hypotension [None]
  - Acute respiratory distress syndrome [None]
  - Blood culture positive [None]
  - Epistaxis [None]
  - Tumour lysis syndrome [None]
  - Asthenia [None]
  - Bacterial infection [None]
  - Acute lung injury [None]
  - Diplegia [None]
  - Vision blurred [None]
  - Heart rate increased [None]
  - Hypoxia [None]
  - Acute kidney injury [None]

NARRATIVE: CASE EVENT DATE: 20181216
